FAERS Safety Report 9486484 (Version 1)
Quarter: 2013Q3

REPORT INFORMATION
  Report Type: Spontaneous
  Country: US (occurrence: None)
  Receive Date: 20130827
  Receipt Date: 20130827
  Transmission Date: 20140515
  Serious: Yes (Disabling)
  Sender: FDA-Public Use
  Company Number: None

PATIENT
  Age: 48 Year
  Sex: Female
  Weight: 81.65 kg

DRUGS (2)
  1. SERTRALINE HCL [Suspect]
     Indication: ANXIETY
     Dates: start: 20110813, end: 20130822
  2. SERTRALINE HCL [Suspect]
     Indication: DEPRESSION
     Dates: start: 20110813, end: 20130822

REACTIONS (3)
  - Bacterial infection [None]
  - Fungal infection [None]
  - Candida infection [None]
